FAERS Safety Report 5044673-1 (Version None)
Quarter: 2006Q3

REPORT INFORMATION
  Report Type: 
  Country: None (occurrence: None)
  Receive Date: 20060706
  Receipt Date: 20050805
  Transmission Date: 20061208
  Serious: Yes (Hospitalization, Other)
  Sender: FDA-Public Use
  Company Number: MX-BOEHRINGER INGELHEIM PHARMACEUTICALS, INC.-2005-BP-13419MX

PATIENT
  Age: 65 Year
  Sex: Female

DRUGS (4)
  1. MOBICOX 15.0 MG TABLETS [Suspect]
     Indication: BACK PAIN
     Route: 048
     Dates: start: 20050524, end: 20050608
  2. VITAMIN B-12 [Concomitant]
     Indication: ANAEMIA
  3. IRON [Concomitant]
     Indication: ANAEMIA
  4. GLIBENCLAMIDE / METFORMIN [Concomitant]
     Indication: DIABETES MELLITUS
     Dosage: 5/500 MG

REACTIONS (2)
  - DRUG INEFFECTIVE [None]
  - MULTIPLE MYELOMA [None]
